FAERS Safety Report 8894575 (Version 1)
Quarter: 2012Q4

REPORT INFORMATION
  Report Type: 
  Country: US (occurrence: US)
  Receive Date: 20121107
  Receipt Date: 20121107
  Transmission Date: 20130627
  Serious: No
  Sender: FDA-Public Use
  Company Number: US-AMGEN-USASP2011050510

PATIENT
  Age: 52 Year
  Sex: Female

DRUGS (14)
  1. ENBREL [Suspect]
     Indication: PRODUCT USED FOR UNKNOWN INDICATION
     Dosage: 50 mg, qwk
  2. FOLIC ACID [Concomitant]
     Dosage: UNK
  3. METHOTREXATE [Concomitant]
     Dosage: 2.5 mg, UNK
  4. BONIVA [Concomitant]
     Dosage: 150 mg, UNK
  5. MAXZIDE [Concomitant]
     Dosage: UNK
  6. DILTIAZEM [Concomitant]
     Dosage: 120 mg, UNK
  7. HYDRALAZINE [Concomitant]
     Dosage: 25 mg, UNK
  8. KLOR-CON [Concomitant]
     Dosage: 10 mEq, UNK
  9. PREVACID [Concomitant]
     Dosage: 30 mg, UNK
  10. LEVOTHYROXIN [Concomitant]
     Dosage: 100 mug, UNK
  11. FENOFIBRATE [Concomitant]
     Dosage: 54 mg, UNK
  12. ASPIRIN [Concomitant]
     Dosage: 1 mg, UNK
  13. VITAMIN D3 [Concomitant]
     Dosage: 1000 IU, UNK
  14. SIMPONI [Concomitant]
     Dosage: 50 mg, UNK

REACTIONS (2)
  - Cough [Unknown]
  - Malaise [Unknown]
